FAERS Safety Report 19955249 (Version 1)
Quarter: 2021Q4

REPORT INFORMATION
  Report Type: Spontaneous
  Country: DK (occurrence: DK)
  Receive Date: 20211014
  Receipt Date: 20211014
  Transmission Date: 20220303
  Serious: Yes (Other)
  Sender: FDA-Public Use
  Company Number: DK-PFIZER INC-202101323517

PATIENT
  Age: 49 Year
  Sex: Female

DRUGS (2)
  1. LYRICA [Suspect]
     Active Substance: PREGABALIN
     Dosage: 25 MG
  2. LYRICA [Suspect]
     Active Substance: PREGABALIN
     Dosage: 100 MG

REACTIONS (2)
  - Hallucination [Recovered/Resolved]
  - Psychotic disorder [Recovered/Resolved]
